FAERS Safety Report 12106510 (Version 1)
Quarter: 2016Q1

REPORT INFORMATION
  Report Type: Other
  Country: DE (occurrence: DE)
  Receive Date: 20160223
  Receipt Date: 20160223
  Transmission Date: 20160526
  Serious: Yes (Other)
  Sender: FDA-Public Use
  Company Number: DE-MYLANLABS-2016M1006326

PATIENT

DRUGS (2)
  1. CELECOXIB. [Suspect]
     Active Substance: CELECOXIB
     Indication: ARTHRALGIA
     Dosage: 100 MG, QD (DAILY DOSE: 100 MG MILLGRAM(S) EVERY DAYS)
  2. METHYLPREDNISOLON                  /00049601/ [Concomitant]
     Active Substance: METHYLPREDNISOLONE
     Dosage: 8 MG, UNK

REACTIONS (6)
  - Vaginal haemorrhage [Recovering/Resolving]
  - Breast engorgement [Recovering/Resolving]
  - Rash [Recovering/Resolving]
  - Blister [Recovering/Resolving]
  - Eyelid oedema [Recovering/Resolving]
  - Nipple exudate bloody [Recovering/Resolving]

NARRATIVE: CASE EVENT DATE: 20151222
